FAERS Safety Report 8491855-2 (Version None)
Quarter: 2012Q3

REPORT INFORMATION
  Report Type: 
  Country: None (occurrence: None)
  Receive Date: 20120706
  Receipt Date: 20110729
  Transmission Date: 20120928
  Serious: No
  Sender: FDA-Public Use
  Company Number: US-GLAXOSMITHKLINE-A0939115A

PATIENT
  Age: 3 Year
  Sex: Male

DRUGS (3)
  1. HYDROXYZINE [Concomitant]
  2. FLOVENT [Suspect]
     Indication: EOSINOPHILIC OESOPHAGITIS
     Dosage: 1PUFF TWICE PER DAY
     Route: 048
     Dates: start: 20100601
  3. ZYRTEC [Concomitant]

REACTIONS (2)
  - INCORRECT ROUTE OF DRUG ADMINISTRATION [None]
  - DYSPHEMIA [None]
